FAERS Safety Report 20391326 (Version 1)
Quarter: 2022Q1

REPORT INFORMATION
  Report Type: Spontaneous
  Country: US (occurrence: None)
  Receive Date: 20220127
  Receipt Date: 20220127
  Transmission Date: 20220423
  Serious: Yes (Other)
  Sender: FDA-Public Use
  Company Number: None

PATIENT
  Age: 71 Year
  Sex: Female
  Weight: 86 kg

DRUGS (1)
  1. BARICITINIB [Suspect]
     Active Substance: BARICITINIB
     Indication: COVID-19
     Dates: start: 20220106, end: 20220117

REACTIONS (4)
  - Pneumonia [None]
  - Tuberculin test positive [None]
  - Candida infection [None]
  - Sputum culture positive [None]

NARRATIVE: CASE EVENT DATE: 20220110
